FAERS Safety Report 23050226 (Version 6)
Quarter: 2024Q1

REPORT INFORMATION
  Report Type: Spontaneous
  Country: ES (occurrence: ES)
  Receive Date: 20231010
  Receipt Date: 20240311
  Transmission Date: 20240409
  Serious: Yes (Life-Threatening, Other)
  Sender: FDA-Public Use
  Company Number: ES-SANDOZ-SDZ2023ES035663

PATIENT
  Age: 34 Year
  Sex: Male

DRUGS (43)
  1. DOXORUBICIN HYDROCHLORIDE [Suspect]
     Active Substance: DOXORUBICIN HYDROCHLORIDE
     Indication: Desmoplastic small round cell tumour
     Dosage: 25 MG/M2, D1-3 (VDC, FIRST-LINE TREATMENT) P6 PROTOCOL (SEVEN CYCLES)
     Route: 065
     Dates: start: 20180808
  2. DOXORUBICIN HYDROCHLORIDE [Suspect]
     Active Substance: DOXORUBICIN HYDROCHLORIDE
     Dosage: UNK (FIVE CYCLES (VDC))
     Route: 065
     Dates: start: 2018
  3. ETOPOSIDE [Suspect]
     Active Substance: ETOPOSIDE
     Indication: Desmoplastic small round cell tumour
     Dosage: P6 PROTOCOL (SEVEN CYCLES)
     Route: 065
     Dates: start: 201808
  4. ETOPOSIDE [Suspect]
     Active Substance: ETOPOSIDE
     Dosage: 5.4 MG/M2, QW (1.8 MG/M2,D1-5 EVERY 3 WEEKS WAS STARTED)
     Route: 065
     Dates: start: 201902
  5. IRINOTECAN HYDROCHLORIDE [Suspect]
     Active Substance: IRINOTECAN HYDROCHLORIDE
     Indication: Desmoplastic small round cell tumour
     Dosage: UNK DAY 1-5)
     Route: 065
     Dates: start: 201904
  6. IRINOTECAN HYDROCHLORIDE [Suspect]
     Active Substance: IRINOTECAN HYDROCHLORIDE
     Dosage: 60 MG/M2, Q3W (20 MILLIGRAM/SQ. METER, D1-5, Q3WK)
     Route: 065
     Dates: start: 201904
  7. GEMCITABINE HYDROCHLORIDE [Suspect]
     Active Substance: GEMCITABINE HYDROCHLORIDE
     Indication: Desmoplastic small round cell tumour
     Dosage: 900 MILLIGRAM/SQ. METER, DAYS 1 AND 8, Q3WK
     Route: 065
     Dates: start: 202107, end: 202112
  8. DOCETAXEL [Suspect]
     Active Substance: DOCETAXEL\DOCETAXEL ANHYDROUS
     Indication: Desmoplastic small round cell tumour
     Dosage: UNK (UNK (DAY 8 AND 21)
     Route: 065
     Dates: start: 202107
  9. DOCETAXEL [Suspect]
     Active Substance: DOCETAXEL\DOCETAXEL ANHYDROUS
     Dosage: 225 MG, Q3W (DAY 8)
     Route: 065
     Dates: start: 202107, end: 202112
  10. DOCETAXEL [Suspect]
     Active Substance: DOCETAXEL\DOCETAXEL ANHYDROUS
     Dosage: 75 MG/M2 DAY 8 EVERY 21 DAYS (SIXTH LINE)
     Route: 065
     Dates: start: 202107
  11. PAZOPANIB [Suspect]
     Active Substance: PAZOPANIB
     Indication: Desmoplastic small round cell tumour
     Dosage: 800 MG, QD
     Route: 065
     Dates: start: 202010
  12. TEMOZOLOMIDE [Suspect]
     Active Substance: TEMOZOLOMIDE
     Indication: Desmoplastic small round cell tumour
     Dosage: UNK DAY 1-5 (EVERY 21 DAYS)
     Route: 065
     Dates: start: 201904
  13. TEMOZOLOMIDE [Suspect]
     Active Substance: TEMOZOLOMIDE
     Dosage: 300 MG/M2, QW (100 MILLIGRAM/SQ. METER, D1-5, Q3WK)
     Route: 065
     Dates: start: 201904
  14. TEMOZOLOMIDE [Suspect]
     Active Substance: TEMOZOLOMIDE
     Dosage: 100 MG/M2 D1-5 EVERY 21 DAYS (SECOND LINE)
     Route: 065
  15. TOPOTECAN HYDROCHLORIDE [Suspect]
     Active Substance: TOPOTECAN HYDROCHLORIDE
     Indication: Desmoplastic small round cell tumour
     Dosage: 0.75 MG/M2/DAY EVERY 3 WEEKS
     Route: 065
     Dates: start: 202103
  16. VINORELBINE [Suspect]
     Active Substance: VINORELBINE TARTRATE
     Indication: Desmoplastic small round cell tumour
     Dosage: UNK (D1-28) EVERY 28 DAYS)
     Route: 065
     Dates: start: 20211228, end: 20220313
  17. VINORELBINE [Suspect]
     Active Substance: VINORELBINE TARTRATE
     Dosage: 25 MG/M2, CYCLIC
     Route: 065
     Dates: start: 20211228, end: 20220313
  18. VINORELBINE [Suspect]
     Active Substance: VINORELBINE TARTRATE
     Dosage: 25 MG/M2 ON DAYS 1 AND 8
     Route: 065
  19. CYCLOPHOSPHAMIDE [Suspect]
     Active Substance: CYCLOPHOSPHAMIDE
     Indication: Desmoplastic small round cell tumour
     Dosage: 6300 MG, QW (2100 MG/M2, D1-2 EVERY 3 WEEKS) ((VDC FIRST-LINE TREATMENT) P6 PROTOCOL (SEVEN CYCLES)
     Route: 065
     Dates: start: 20180808
  20. CYCLOPHOSPHAMIDE [Suspect]
     Active Substance: CYCLOPHOSPHAMIDE
     Dosage: UNK, FIVE CYCLES (VDC)
     Route: 065
     Dates: start: 2018
  21. CYCLOPHOSPHAMIDE [Suspect]
     Active Substance: CYCLOPHOSPHAMIDE
     Dosage: 750 MG/M2, Q3W (250MG/M2/DAY) DAY 1-5 EVERY 3 WEEKS)
     Route: 065
     Dates: start: 202103
  22. CYCLOPHOSPHAMIDE [Suspect]
     Active Substance: CYCLOPHOSPHAMIDE
     Dosage: 25 MG/M2 (D1-28)  EVERY 28 DAYS) WERE ADMINISTERED AS THE SEVENTH LINE OF TREATMENT
     Route: 048
     Dates: start: 20211228, end: 20220313
  23. CYCLOPHOSPHAMIDE [Suspect]
     Active Substance: CYCLOPHOSPHAMIDE
     Dosage: 6300 MG, QW (2100 MG/M2, D1-2 EVERY 3 WEEKS)
     Route: 065
     Dates: start: 20230808
  24. VINCRISTINE [Suspect]
     Active Substance: VINCRISTINE
     Indication: Desmoplastic small round cell tumour
     Dosage: 0.67 MG/M2, D1-3 (VDC FIRST-LINE TREATMENT) P6 PROTOCOL (SEVEN CYCLES)
     Route: 065
     Dates: start: 20180808
  25. VINCRISTINE [Suspect]
     Active Substance: VINCRISTINE
     Dosage: UNK, FIVE CYCLES
     Route: 065
     Dates: start: 2018
  26. PEGFILGRASTIM [Suspect]
     Active Substance: PEGFILGRASTIM
     Indication: Prophylaxis
     Dosage: UNK, CYCLIC
     Route: 065
  27. PEGFILGRASTIM [Suspect]
     Active Substance: PEGFILGRASTIM
     Indication: Desmoplastic small round cell tumour
     Dosage: CONTINUE WITH 4-WEEK INTERVALS
     Route: 065
  28. FILGRASTIM [Suspect]
     Active Substance: FILGRASTIM
     Indication: Prophylaxis
     Dosage: UNK, CYCLIC
     Route: 065
     Dates: start: 201808
  29. TRABECTEDIN [Suspect]
     Active Substance: TRABECTEDIN
     Indication: Desmoplastic small round cell tumour
     Dosage: UNK
     Route: 065
     Dates: start: 201907
  30. TRABECTEDIN [Suspect]
     Active Substance: TRABECTEDIN
     Dosage: 1.2 MG/M2, CYCLIC
     Route: 065
     Dates: start: 201907
  31. TRABECTEDIN [Suspect]
     Active Substance: TRABECTEDIN
     Dosage: 1.5 MG/M2, NINE CYCLES (THIRD LINE)
     Route: 065
     Dates: start: 201907
  32. TRABECTEDIN [Suspect]
     Active Substance: TRABECTEDIN
     Dosage: UNK MILLIGRAM/SQ. METER, CYCLICAL
     Route: 065
     Dates: start: 201909, end: 202009
  33. TRABECTEDIN [Suspect]
     Active Substance: TRABECTEDIN
     Dosage: 1 MG/M2
     Route: 065
  34. TRABECTEDIN [Suspect]
     Active Substance: TRABECTEDIN
     Dosage: NINE CYCLES OF TRABECTEDIN UNTIL MARCH 2020 ROUTE OF ADMIN (FREE TEXT): UNKNOWN ROUTE
     Route: 065
  35. TRABECTEDIN [Suspect]
     Active Substance: TRABECTEDIN
     Dosage: UNK (1.2MG/M2)
     Route: 065
  36. TRABECTEDIN [Suspect]
     Active Substance: TRABECTEDIN
     Dosage: UNK (1 MG/M2)
     Route: 065
  37. TRABECTEDIN [Suspect]
     Active Substance: TRABECTEDIN
     Dosage: DOSE REDUCED BY ANOTHER LEVEL TO 1 MG/M2
     Route: 065
  38. IFOSFAMIDE [Suspect]
     Active Substance: IFOSFAMIDE
     Indication: Desmoplastic small round cell tumour
     Dosage: P6 PROTOCOL (SEVEN CYCLES) ROUTE OF ADMIN (FREE TEXT): UNKNOWN ROUTE
     Route: 065
     Dates: start: 201808
  39. IFOSFAMIDE [Suspect]
     Active Substance: IFOSFAMIDE
     Dosage: 100 MG/M2, CYCLIC
     Route: 065
     Dates: start: 201902
  40. IFOSFAMIDE [Suspect]
     Active Substance: IFOSFAMIDE
     Dosage: 300 MG/M2, Q3W
     Route: 065
     Dates: start: 201902
  41. IFOSFAMIDE [Suspect]
     Active Substance: IFOSFAMIDE
     Dosage: UNK (HIGH DOSE)
     Route: 065
     Dates: start: 2022
  42. IFOSFAMIDE [Suspect]
     Active Substance: IFOSFAMIDE
     Dosage: UNK
     Route: 065
     Dates: start: 201902
  43. GRANULOCYTE COLONY-STIMULATING FACTOR NOS [Concomitant]
     Active Substance: GRANULOCYTE COLONY-STIMULATING FACTOR NOS
     Indication: Product used for unknown indication
     Dosage: UNK (INCREASED FOR 7 DAYS)
     Route: 065

REACTIONS (11)
  - Febrile neutropenia [Unknown]
  - Thrombocytopenia [Unknown]
  - Disease recurrence [Unknown]
  - Haematotoxicity [Unknown]
  - Neoplasm progression [Unknown]
  - Desmoplastic small round cell tumour [Unknown]
  - Neutropenia [Unknown]
  - Biliary sepsis [Unknown]
  - Off label use [Unknown]
  - Product use in unapproved indication [Unknown]
  - Drug ineffective [Unknown]
